FAERS Safety Report 6386162-8 (Version None)
Quarter: 2009Q4

REPORT INFORMATION
  Report Type: 
  Country: None (occurrence: None)
  Receive Date: 20091002
  Receipt Date: 20081219
  Transmission Date: 20100525
  Serious: Yes (Other)
  Sender: FDA-Public Use
  Company Number: US-ASTRAZENECA-2008UW28446

PATIENT
  Age: 60 Year
  Sex: Female
  Weight: 79.4 kg

DRUGS (5)
  1. ARIMIDEX [Suspect]
     Indication: BREAST CANCER
     Dates: start: 20040101
  2. ACTONEL [Concomitant]
  3. LEXAPRO [Concomitant]
  4. PSEUDOEPHEDRINE HCL [Concomitant]
  5. IBUPROFEN [Concomitant]

REACTIONS (2)
  - BONE PAIN [None]
  - HIP FRACTURE [None]
